FAERS Safety Report 16320430 (Version 1)
Quarter: 2019Q2

REPORT INFORMATION
  Report Type: Spontaneous
  Country: US (occurrence: US)
  Receive Date: 20190410
  Receipt Date: 20190410
  Transmission Date: 20190711
  Serious: No
  Sender: FDA-Public Use
  Company Number: None

PATIENT
  Sex: Female

DRUGS (1)
  1. SUTENT [Suspect]
     Active Substance: SUNITINIB MALATE
     Indication: NEOPLASM MALIGNANT
     Route: 048
     Dates: start: 20190223

REACTIONS (6)
  - Pain in extremity [None]
  - Back pain [None]
  - Hypoaesthesia [None]
  - Neuropathy peripheral [None]
  - Insomnia [None]
  - Abdominal distension [None]
